FAERS Safety Report 13782242 (Version 1)
Quarter: 2017Q3

REPORT INFORMATION
  Report Type: Spontaneous
  Country: US (occurrence: US)
  Receive Date: 20170724
  Receipt Date: 20170724
  Transmission Date: 20171127
  Serious: No
  Sender: FDA-Public Use
  Company Number: US-IPSEN BIOPHARMACEUTICALS, INC.-2016-05297

PATIENT
  Age: 54 Year
  Sex: Male
  Weight: 104 kg

DRUGS (15)
  1. COQ 10 [Concomitant]
     Active Substance: UBIDECARENONE
  2. SOMATULINE DEPOT [Suspect]
     Active Substance: LANREOTIDE ACETATE
     Indication: PITUITARY TUMOUR
     Dosage: 90 MG
     Route: 058
     Dates: start: 20160607
  3. SOMATULINE DEPOT [Suspect]
     Active Substance: LANREOTIDE ACETATE
     Indication: ACROMEGALY
  4. TAMSULOSIN [Concomitant]
     Active Substance: TAMSULOSIN
  5. IBUPROFEN. [Concomitant]
     Active Substance: IBUPROFEN
  6. CRESTOR [Concomitant]
     Active Substance: ROSUVASTATIN CALCIUM
  7. CLARITIN [Concomitant]
     Active Substance: LORATADINE
  8. PEPCID [Concomitant]
     Active Substance: FAMOTIDINE
  9. SYNTHROID [Concomitant]
     Active Substance: LEVOTHYROXINE SODIUM
  10. HYDROCORTISONE. [Concomitant]
     Active Substance: HYDROCORTISONE
  11. VITAMIN D [Concomitant]
     Active Substance: CHOLECALCIFEROL
  12. FISH OIL [Concomitant]
     Active Substance: FISH OIL
  13. VENLAFAXINE [Concomitant]
     Active Substance: VENLAFAXINE HYDROCHLORIDE
  14. BENADRYL [Concomitant]
     Active Substance: DIPHENHYDRAMINE HYDROCHLORIDE
  15. CELEBREX [Concomitant]
     Active Substance: CELECOXIB

REACTIONS (3)
  - Somnolence [Recovered/Resolved]
  - Feeling abnormal [Recovered/Resolved]
  - Dizziness [Recovered/Resolved]

NARRATIVE: CASE EVENT DATE: 20160607
